FAERS Safety Report 5027156-4 (Version None)
Quarter: 2006Q2

REPORT INFORMATION
  Report Type: 
  Country: None (occurrence: None)
  Receive Date: 20060501
  Receipt Date: 20060131
  Transmission Date: 20061013
  Serious: No
  Sender: FDA-Public Use
  Company Number: 2006PV007943

PATIENT
  Age: 48 Year
  Sex: Female
  Weight: 98.4306 kg

DRUGS (6)
  1. SYMLIN INJECTION (0.6 MG/ML) [Suspect]
     Indication: DIABETES MELLITUS NON-INSULIN-DEPENDENT
     Dosage: 120 MCG; TID; SC;  90 MCG; SC;  60 MCG
     Route: 058
     Dates: start: 20060126, end: 20060126
  2. SYMLIN INJECTION (0.6 MG/ML) [Suspect]
     Indication: DIABETES MELLITUS NON-INSULIN-DEPENDENT
     Dosage: 120 MCG; TID; SC;  90 MCG; SC;  60 MCG
     Route: 058
     Dates: start: 20060127, end: 20060128
  3. SYMLIN INJECTION (0.6 MG/ML) [Suspect]
     Indication: DIABETES MELLITUS NON-INSULIN-DEPENDENT
     Dosage: 120 MCG; TID; SC;  90 MCG; SC;  60 MCG
     Route: 058
     Dates: start: 20060129
  4. LANTUS [Concomitant]
  5. NOVOLOG [Concomitant]
  6. GLUCOPHAGE [Concomitant]

REACTIONS (1)
  - BLOOD GLUCOSE INCREASED [None]
